FAERS Safety Report 4659631-6 (Version None)
Quarter: 2005Q2

REPORT INFORMATION
  Report Type: 
  Country: None (occurrence: None)
  Receive Date: 20050411
  Receipt Date: 20050126
  Transmission Date: 20051028
  Serious: No
  Sender: FDA-Public Use
  Company Number: A03200500263

PATIENT
  Age: 75 Year
  Sex: Male

DRUGS (2)
  1. UROXATRAL [Suspect]
     Indication: POLLAKIURIA
     Dosage: 10 MG OD - ORAL
     Route: 048
     Dates: start: 20041222
  2. CARDIAC THERAPY NOS [Concomitant]

REACTIONS (1)
  - PROSTATIC SPECIFIC ANTIGEN INCREASED [None]
